FAERS Safety Report 8504518-1 (Version None)
Quarter: 2012Q3

REPORT INFORMATION
  Report Type: 
  Country: None (occurrence: None)
  Receive Date: 20120711
  Receipt Date: 20120705
  Transmission Date: 20120928
  Serious: Yes (Hospitalization)
  Sender: FDA-Public Use
  Company Number: FR-PFIZER INC-2011225220

PATIENT
  Age: 71 Year
  Sex: Female

DRUGS (3)
  1. NAPROXEN [Suspect]
     Indication: ARTHRALGIA
     Dosage: 550 MG, 1 TO 2 DF PER DAY
     Route: 048
     Dates: start: 20110815
  2. ACETAMINOPHEN AND CODEINE PHOSPHATE [Suspect]
     Indication: ARTHRALGIA
     Dosage: UNK
     Route: 048
  3. SOLU-MEDROL [Suspect]
     Indication: MULTIPLE SCLEROSIS
     Dosage: 500 MG, BOLUS EVERY 3-4MONTHS
     Route: 042
     Dates: end: 20110822

REACTIONS (2)
  - ANAPHYLACTIC SHOCK [None]
  - PARAESTHESIA [None]
